FAERS Safety Report 21902243 (Version 2)
Quarter: 2023Q1

REPORT INFORMATION
  Report Type: Other
  Country: SE (occurrence: None)
  Receive Date: 20230124
  Receipt Date: 20230202
  Transmission Date: 20230418
  Serious: Yes (Other)
  Sender: FDA-Public Use
  Company Number: SE-ROCHE-3269056

PATIENT
  Age: 7 Year
  Sex: Male
  Weight: 30 kg

DRUGS (2)
  1. ENTRECTINIB [Suspect]
     Active Substance: ENTRECTINIB
     Indication: Neuroblastoma
     Route: 048
     Dates: start: 20161101
  2. CELEBRA [Concomitant]
     Active Substance: CELECOXIB
     Indication: Neuroblastoma
     Route: 048
     Dates: start: 20160406

REACTIONS (2)
  - Ear infection [Recovering/Resolving]
  - Middle ear inflammation [Unknown]

NARRATIVE: CASE EVENT DATE: 20210901
